FAERS Safety Report 4396775-0 (Version None)
Quarter: 2004Q3

REPORT INFORMATION
  Report Type: 
  Country: None (occurrence: None)
  Receive Date: 20040709
  Receipt Date: 20040624
  Transmission Date: 20050211
  Serious: Yes (Other)
  Sender: FDA-Public Use
  Company Number: 430006M04FRA

PATIENT
  Age: 55 Year
  Sex: Female

DRUGS (3)
  1. NOVANTRONE [Suspect]
     Indication: BREAST CANCER METASTATIC
  2. DEXRAZOXANE HYDROCHLORIDE [Suspect]
  3. VINORELBINE TARTRATE [Suspect]
     Indication: BREAST CANCER METASTATIC

REACTIONS (2)
  - CARDIOTOXICITY [None]
  - DRUG INTERACTION [None]
